FAERS Safety Report 4289582-0 (Version None)
Quarter: 2004Q1

REPORT INFORMATION
  Report Type: 
  Country: None (occurrence: None)
  Receive Date: 20040127
  Receipt Date: 20030130
  Transmission Date: 20041129
  Serious: Yes (Hospitalization)
  Sender: FDA-Public Use
  Company Number: TAP2001Q02423

PATIENT
  Age: 82 Year
  Sex: Female

DRUGS (4)
  1. PREVPAC [Suspect]
     Indication: HELICOBACTER INFECTION
     Dosage: 0.5 CARD, 2 IN 1 D, ORAL
     Route: 048
     Dates: start: 20010801, end: 20010801
  2. DIGOXIN [Concomitant]
  3. AVALIDE (KARVEA HCT) [Concomitant]
  4. CELEBREX [Concomitant]

REACTIONS (9)
  - ASTHENIA [None]
  - BLOOD PRESSURE DECREASED [None]
  - CONDITION AGGRAVATED [None]
  - DIZZINESS [None]
  - DYSGEUSIA [None]
  - HEADACHE [None]
  - NAUSEA [None]
  - PALPITATIONS [None]
  - TONGUE COATED [None]
